FAERS Safety Report 5132314-4 (Version None)
Quarter: 2006Q4

REPORT INFORMATION
  Report Type: 
  Country: None (occurrence: None)
  Receive Date: 20061019
  Receipt Date: 20061019
  Transmission Date: 20070319
  Serious: Yes (Other)
  Sender: FDA-Public Use
  Company Number: None

PATIENT
  Sex: Female

DRUGS (2)
  1. CYMBALTA [Suspect]
     Dosage: 20 MG - 4 CAPS QD PO
     Route: 048
  2. LAMISIL [Suspect]
     Dosage: 250 MG 1 QD PO
     Route: 048

REACTIONS (1)
  - RESPIRATORY DISTRESS [None]
